FAERS Safety Report 13711728 (Version 2)
Quarter: 2017Q3

REPORT INFORMATION
  Report Type: Spontaneous
  Country: US (occurrence: US)
  Receive Date: 20170703
  Receipt Date: 20170912
  Transmission Date: 20171127
  Serious: Yes (Hospitalization, Other)
  Sender: FDA-Public Use
  Company Number: US-SA-2017SA116722

PATIENT
  Age: 70 Year
  Sex: Female
  Weight: 68.03 kg

DRUGS (8)
  1. SYNTHROID [Concomitant]
     Active Substance: LEVOTHYROXINE SODIUM
     Indication: THYROID DISORDER
     Route: 065
  2. LOVENOX [Suspect]
     Active Substance: ENOXAPARIN SODIUM
     Indication: LUNG CANCER METASTATIC
     Route: 065
     Dates: start: 20140214
  3. LOVENOX [Suspect]
     Active Substance: ENOXAPARIN SODIUM
     Indication: LUNG CANCER METASTATIC
     Route: 065
     Dates: start: 20160806
  4. CRESTOR [Concomitant]
     Active Substance: ROSUVASTATIN CALCIUM
     Route: 065
  5. LOVENOX [Suspect]
     Active Substance: ENOXAPARIN SODIUM
     Indication: LUNG CANCER METASTATIC
     Route: 065
     Dates: start: 20160420
  6. LOVENOX [Suspect]
     Active Substance: ENOXAPARIN SODIUM
     Indication: LUNG CANCER METASTATIC
     Route: 065
     Dates: start: 20170528
  7. VERAPAMIL [Concomitant]
     Active Substance: VERAPAMIL HYDROCHLORIDE
     Indication: SUPRAVENTRICULAR TACHYCARDIA
     Route: 065
  8. DIGOXIN. [Concomitant]
     Active Substance: DIGOXIN
     Indication: SUPRAVENTRICULAR TACHYCARDIA
     Route: 065

REACTIONS (4)
  - Cerebral haemorrhage [Not Recovered/Not Resolved]
  - Product use issue [Unknown]
  - Pulmonary thrombosis [Not Recovered/Not Resolved]
  - Embolism [Not Recovered/Not Resolved]

NARRATIVE: CASE EVENT DATE: 20160806
